FAERS Safety Report 19438396 (Version 1)
Quarter: 2021Q2

REPORT INFORMATION
  Report Type: Spontaneous
  Country: CN (occurrence: CN)
  Receive Date: 20210619
  Receipt Date: 20210619
  Transmission Date: 20210717
  Serious: Yes (Hospitalization)
  Sender: FDA-Public Use
  Company Number: CN-YILING-CN-2021-YPL-00059

PATIENT

DRUGS (3)
  1. AMLODIPINE BESYLATE. [Suspect]
     Active Substance: AMLODIPINE BESYLATE
     Dosage: EXCESSIVE DOSE
     Dates: start: 20190915
  2. NOT APPLICABLE [Suspect]
     Active Substance: HYOSCYAMINE SULFATE
     Dates: start: 20190915
  3. NOT APPLICABLE [Suspect]
     Active Substance: HYOSCYAMINE SULFATE
     Dosage: EXCESSIVE DOSE
     Dates: start: 20190915

REACTIONS (5)
  - Intentional overdose [Unknown]
  - Somnolence [Recovering/Resolving]
  - Hypotension [Recovered/Resolved]
  - Body temperature increased [Recovering/Resolving]
  - Heart rate increased [Recovered/Resolved]

NARRATIVE: CASE EVENT DATE: 20190915
